FAERS Safety Report 4424467-8 (Version None)
Quarter: 2004Q3

REPORT INFORMATION
  Report Type: 
  Country: None (occurrence: None)
  Receive Date: 20040812
  Receipt Date: 20040730
  Transmission Date: 20050211
  Serious: Yes (Other)
  Sender: FDA-Public Use
  Company Number: US-GLAXOSMITHKLINE-A0520370A

PATIENT
  Age: 5 Year
  Sex: Female

DRUGS (2)
  1. LAMICTAL [Suspect]
     Indication: CONVULSION
     Dosage: 80MG PER DAY
     Route: 048
  2. TEGRETOL [Concomitant]

REACTIONS (2)
  - COMPLEX PARTIAL SEIZURES [None]
  - CONVULSION [None]
